FAERS Safety Report 7542121-0 (Version None)
Quarter: 2011Q2

REPORT INFORMATION
  Report Type: 
  Country: None (occurrence: None)
  Receive Date: 20110524
  Receipt Date: 20110310
  Transmission Date: 20111010
  Serious: No
  Sender: FDA-Public Use
  Company Number: 029109

PATIENT
  Sex: Female
  Weight: 67.1 kg

DRUGS (6)
  1. CIMZIA [Suspect]
     Indication: CROHN'S DISEASE
     Dosage: (400 MG 1X/2 WEEKS SUBCUTANEOUS)
     Route: 058
     Dates: start: 20110202
  2. WELLBUTRIN [Concomitant]
  3. AMLODIPINE [Concomitant]
  4. ACIPHEX [Concomitant]
  5. CITALOPRAM HYDROBROMIDE [Concomitant]
  6. FERREX FORTE [Concomitant]

REACTIONS (2)
  - FAECES DISCOLOURED [None]
  - FATIGUE [None]
